FAERS Safety Report 9984141 (Version 1)
Quarter: 2014Q1

REPORT INFORMATION
  Report Type: Report from Study
  Country: US (occurrence: US)
  Receive Date: 20140307
  Receipt Date: 20140307
  Transmission Date: 20141002
  Serious: No
  Sender: FDA-Public Use
  Company Number: US-ABBVIE-13P-163-1183445-00

PATIENT
  Age: 55 Year
  Sex: Female

DRUGS (6)
  1. HUMIRA [Suspect]
     Indication: PSORIASIS
     Dates: start: 20131212, end: 20131212
  2. HUMIRA [Suspect]
     Indication: PSORIASIS
     Dates: start: 20131219
  3. HUMIRA [Suspect]
     Indication: PSORIATIC ARTHROPATHY
  4. TRAMADOL [Concomitant]
     Indication: PAIN
  5. ATARAX [Concomitant]
     Indication: PRURITUS
  6. UNKNOWN MEDICATION [Concomitant]
     Indication: PSORIASIS
     Route: 061

REACTIONS (3)
  - Device issue [Recovered/Resolved]
  - Injection site haemorrhage [Recovered/Resolved]
  - Incorrect dose administered [Recovered/Resolved]
